FAERS Safety Report 17848726 (Version 2)
Quarter: 2020Q2

REPORT INFORMATION
  Report Type: Spontaneous
  Country: GB (occurrence: GB)
  Receive Date: 20200602
  Receipt Date: 20200619
  Transmission Date: 20200714
  Serious: Yes (Other)
  Sender: FDA-Public Use
  Company Number: PHHY2017GB204211

PATIENT
  Age: 48 Year
  Sex: Female

DRUGS (64)
  1. PERTUZUMAB. [Suspect]
     Active Substance: PERTUZUMAB
     Indication: BREAST CANCER METASTATIC
     Dosage: 840 MG, UNK (LOADING DOSE)
     Route: 042
  2. FILGRASTIM [Concomitant]
     Active Substance: FILGRASTIM
     Dosage: 300 UG
     Route: 058
  3. LANSOPRAZOLE. [Concomitant]
     Active Substance: LANSOPRAZOLE
     Indication: DYSPHAGIA
     Dosage: 30 MG , QD
     Route: 048
     Dates: start: 20180619
  4. HYOSCINE-N-BUTYLBROMIDE [Concomitant]
     Active Substance: BUTYLSCOPOLAMINE BROMIDE
     Dosage: 20 MG, QD
     Route: 048
     Dates: start: 20180619
  5. ZOLEDRONIC ACID. [Concomitant]
     Active Substance: ZOLEDRONIC ACID
     Indication: BACK PAIN
     Dosage: 4 MG, QMO
     Route: 042
     Dates: start: 20180822
  6. TRASTUZUMAB. [Suspect]
     Active Substance: TRASTUZUMAB
     Dosage: 450 MG, UNK (LOADING DOSE)
     Route: 042
     Dates: start: 20200516
  7. SALBUTAMOL [Concomitant]
     Active Substance: ALBUTEROL
     Dosage: INHEALED
     Route: 065
  8. ZOPICLONE [Concomitant]
     Active Substance: ZOPICLONE
     Indication: PRODUCT USED FOR UNKNOWN INDICATION
     Dosage: UNK
     Route: 048
  9. FILGRASTIM [Concomitant]
     Active Substance: FILGRASTIM
     Indication: NEUTROPENIA
     Dosage: 300 MG, QD (DAILY FOR SEVEN DAYS STARTING ON DAY 5)
     Route: 058
     Dates: start: 20160525
  10. BISOPROLOL [Concomitant]
     Active Substance: BISOPROLOL
     Indication: PRODUCT USED FOR UNKNOWN INDICATION
     Dosage: 5 MG, QD
     Route: 048
     Dates: start: 20181030
  11. BUDESONIDE. [Concomitant]
     Active Substance: BUDESONIDE
     Indication: PRODUCT USED FOR UNKNOWN INDICATION
     Dosage: 9 MG
     Route: 048
     Dates: start: 20191016
  12. MORPHINE SULFATE. [Concomitant]
     Active Substance: MORPHINE SULFATE
     Dosage: 5 MG
     Route: 048
     Dates: start: 20180822
  13. CODEINE [Concomitant]
     Active Substance: CODEINE
     Indication: PRODUCT USED FOR UNKNOWN INDICATION
     Dosage: 30 MG
     Route: 048
     Dates: start: 20191009
  14. COCODAMOL [Concomitant]
     Active Substance: ACETAMINOPHEN\CODEINE PHOSPHATE
     Indication: ARTHRALGIA
     Dosage: UNK
     Route: 048
     Dates: start: 20190123
  15. PERTUZUMAB. [Suspect]
     Active Substance: PERTUZUMAB
     Indication: HER2 POSITIVE BREAST CANCER
     Dosage: 420 MG, TIW
     Route: 042
     Dates: start: 20160606, end: 20180524
  16. PERTUZUMAB. [Suspect]
     Active Substance: PERTUZUMAB
     Dosage: 840 MG, TIW
     Route: 042
     Dates: start: 20160606
  17. AMETOP [Concomitant]
     Indication: PRODUCT USED FOR UNKNOWN INDICATION
     Dosage: 4 %, QD
     Route: 061
     Dates: start: 20160831
  18. TINZAPARIN [Concomitant]
     Active Substance: TINZAPARIN
     Indication: DEEP VEIN THROMBOSIS
     Dosage: 1 DF, QD (DOSE: 12000 UNIT)
     Route: 058
     Dates: start: 20160713
  19. TINZAPARIN [Concomitant]
     Active Substance: TINZAPARIN
     Dosage: 1000 IU, QD
     Route: 058
     Dates: start: 20180619, end: 20181018
  20. IBUPROFEN. [Concomitant]
     Active Substance: IBUPROFEN
     Indication: PRODUCT USED FOR UNKNOWN INDICATION
     Dosage: UNK
     Route: 048
  21. CO-AMOXICLAV [Concomitant]
     Active Substance: AMOXICILLIN\CLAVULANATE POTASSIUM
     Indication: RESPIRATORY TRACT INFECTION
     Dosage: UNK
     Route: 065
  22. CYCLIZINE [Concomitant]
     Active Substance: CYCLIZINE
     Indication: DYSPHAGIA
     Dosage: 150 MG, QD
     Route: 048
     Dates: start: 20180619
  23. MORPHINE SULFATE. [Concomitant]
     Active Substance: MORPHINE SULFATE
     Indication: BACK PAIN
     Dosage: 10 MG
     Route: 048
     Dates: start: 20180822
  24. DOCETAXEL. [Suspect]
     Active Substance: DOCETAXEL
     Indication: BREAST CANCER METASTATIC
     Dosage: 124 MG, Q3W
     Route: 042
     Dates: start: 20160517, end: 20160609
  25. TRASTUZUMAB. [Suspect]
     Active Substance: TRASTUZUMAB
     Dosage: 350 MG, TIW
     Route: 042
     Dates: start: 20160629, end: 20180524
  26. NAPROXEN. [Concomitant]
     Active Substance: NAPROXEN
     Indication: PRODUCT USED FOR UNKNOWN INDICATION
     Dosage: 1000 MG, QD
     Route: 048
  27. NAPROXEN. [Concomitant]
     Active Substance: NAPROXEN
     Dosage: 250 MG
     Route: 048
  28. SALBUTAMOL [Concomitant]
     Active Substance: ALBUTEROL
     Indication: PRODUCT USED FOR UNKNOWN INDICATION
     Dosage: 2 DF, QD
     Route: 055
  29. OMEPRAZOLE. [Concomitant]
     Active Substance: OMEPRAZOLE
     Indication: PRODUCT USED FOR UNKNOWN INDICATION
     Dosage: 40 MG, QD
     Route: 048
  30. BENZYDAMINE HYDROCHLORIDE [Concomitant]
     Active Substance: BENZYDAMINE HYDROCHLORIDE
     Indication: PRODUCT USED FOR UNKNOWN INDICATION
     Dosage: 60 ML, QD
     Route: 060
     Dates: start: 20160525
  31. PARACETAMOL [Concomitant]
     Active Substance: ACETAMINOPHEN
     Dosage: 1 G
     Route: 048
  32. CANDESARTAN. [Concomitant]
     Active Substance: CANDESARTAN
     Indication: PRODUCT USED FOR UNKNOWN INDICATION
     Dosage: 8 MG, QD
     Route: 048
     Dates: start: 20180724
  33. CODEINE LINCTUS [Concomitant]
     Active Substance: CHLOROFORM\CODEINE PHOSPHATE\DRIMIA MARITIMA BULB
     Indication: PRODUCT USED FOR UNKNOWN INDICATION
     Dosage: 30 MG
     Route: 048
     Dates: start: 20191009
  34. TRAMADOL. [Concomitant]
     Active Substance: TRAMADOL
     Indication: PRODUCT USED FOR UNKNOWN INDICATION
     Dosage: 200 MG, QD
     Route: 048
     Dates: start: 20160429
  35. TRAMADOL. [Concomitant]
     Active Substance: TRAMADOL
     Dosage: 50 MG
     Route: 048
     Dates: start: 20160429
  36. TINZAPARIN [Concomitant]
     Active Substance: TINZAPARIN
     Dosage: 8000 IU, QD
     Route: 058
     Dates: start: 20181018, end: 20190426
  37. TINZAPARIN [Concomitant]
     Active Substance: TINZAPARIN
     Dosage: DOSE: 12000 UNIT
     Route: 058
     Dates: start: 20160713
  38. DEXAMETHASONE. [Concomitant]
     Active Substance: DEXAMETHASONE
     Indication: PRODUCT USED FOR UNKNOWN INDICATION
     Dosage: PART OF CHEMOTHERAPY CYCLE
     Route: 048
     Dates: start: 20160512
  39. DEXAMETHASONE. [Concomitant]
     Active Substance: DEXAMETHASONE
     Dosage: PART OF CHEMOTHERAPY CYCLE
     Route: 048
     Dates: start: 20160512
  40. NYSTATIN. [Concomitant]
     Active Substance: NYSTATIN
     Indication: PRODUCT USED FOR UNKNOWN INDICATION
     Dosage: 4 DF, QD (SUSPENSIONDOSE: 10000 U)
     Route: 048
     Dates: start: 20160525
  41. CALCICHEW D3 FORTE [Concomitant]
     Active Substance: CALCIUM\CHOLECALCIFEROL
     Indication: PRODUCT USED FOR UNKNOWN INDICATION
     Dosage: 1 OT, QD
     Route: 048
     Dates: start: 20180822
  42. DOCETAXEL. [Suspect]
     Active Substance: DOCETAXEL
     Dosage: 100 MG, Q3W
     Route: 042
     Dates: start: 20160629, end: 20160720
  43. TRASTUZUMAB. [Suspect]
     Active Substance: TRASTUZUMAB
     Dosage: 400 MG, TIW
     Route: 042
     Dates: start: 20160606
  44. TRASTUZUMAB. [Suspect]
     Active Substance: TRASTUZUMAB
     Dosage: 400 MG, UNK (DOSE AMENDED DUE TO WEIGHT)
     Route: 042
  45. TRASTUZUMAB. [Suspect]
     Active Substance: TRASTUZUMAB
     Dosage: 180 MG, TIW
     Route: 042
     Dates: start: 20180904
  46. PERTUZUMAB. [Suspect]
     Active Substance: PERTUZUMAB
     Dosage: LOADING DOSE
     Route: 042
     Dates: start: 20160516
  47. DOMPERIDONE [Concomitant]
     Active Substance: DOMPERIDONE
     Indication: PRODUCT USED FOR UNKNOWN INDICATION
     Dosage: 30 MG, QD
     Route: 048
     Dates: start: 20160512
  48. PARACETAMOL [Concomitant]
     Active Substance: ACETAMINOPHEN
     Indication: PRODUCT USED FOR UNKNOWN INDICATION
     Dosage: 4 G, QD
     Route: 048
  49. MENTHOL. [Concomitant]
     Active Substance: MENTHOL
     Indication: PRODUCT USED FOR UNKNOWN INDICATION
     Dosage: 6 %, QD
     Route: 061
     Dates: start: 20160525
  50. FORTISIP [Concomitant]
     Active Substance: CARBOHYDRATES\FATTY ACIDS\MINERALS\PROTEIN\VITAMINS
     Indication: PRODUCT USED FOR UNKNOWN INDICATION
     Dosage: 1 DF, QD
     Route: 048
     Dates: start: 20160525
  51. DEXAMETHASONE. [Concomitant]
     Active Substance: DEXAMETHASONE
     Dosage: 8 MG
     Route: 048
  52. DOMPERIDONE [Concomitant]
     Active Substance: DOMPERIDONE
     Dosage: 10 MG, QD
     Route: 048
     Dates: start: 20160512
  53. NYSTATIN. [Concomitant]
     Active Substance: NYSTATIN
     Dosage: SUSPENSIONDOSE: 10000 U
     Route: 048
     Dates: start: 20160525
  54. CETIRIZINE [Concomitant]
     Active Substance: CETIRIZINE HYDROCHLORIDE
     Indication: PRODUCT USED FOR UNKNOWN INDICATION
     Dosage: UNK
     Route: 048
  55. CYCLIZINE [Concomitant]
     Active Substance: CYCLIZINE
     Dosage: 50 MG
     Route: 048
     Dates: start: 20180619
  56. DOCETAXEL. [Suspect]
     Active Substance: DOCETAXEL
     Dosage: 85 MG, TIW
     Route: 042
     Dates: start: 20160811, end: 20160831
  57. TRASTUZUMAB. [Suspect]
     Active Substance: TRASTUZUMAB
     Indication: BREAST CANCER METASTATIC
     Dosage: 450 MG, UNK (LOADING DOSE)
     Route: 042
  58. OMEPRAZOLE. [Concomitant]
     Active Substance: OMEPRAZOLE
     Dosage: 20 MG, QD
     Route: 048
  59. TINZAPARIN [Concomitant]
     Active Substance: TINZAPARIN
     Dosage: 9000 IU, QD
     Route: 058
     Dates: start: 20190426
  60. BENZYDAMINE HYDROCHLORIDE [Concomitant]
     Active Substance: BENZYDAMINE HYDROCHLORIDE
     Dosage: 15 ML, QD
     Route: 060
     Dates: start: 20160525
  61. HYOSCINE-N-BUTYLBROMIDE [Concomitant]
     Active Substance: BUTYLSCOPOLAMINE BROMIDE
     Indication: SALIVARY HYPERSECRETION
     Dosage: 80 MG, QD
     Route: 048
     Dates: start: 20180619
  62. IRON ISOMALTOSIDE 1000 [Concomitant]
     Active Substance: IRON ISOMALTOSIDE 1000
     Indication: BLOOD IRON DECREASED
     Dosage: 100 MG, QD
     Route: 030
     Dates: start: 20180626, end: 20180627
  63. POTASSIUM [Concomitant]
     Active Substance: POTASSIUM
     Indication: BLOOD POTASSIUM DECREASED
     Dosage: 50 MMOL, QD
     Route: 042
     Dates: start: 20180619, end: 20180620
  64. LOPERAMIDE [Concomitant]
     Active Substance: LOPERAMIDE
     Indication: DEEP VEIN THROMBOSIS
     Dosage: 2 MG
     Route: 048
     Dates: start: 20160516

REACTIONS (5)
  - Ejection fraction decreased [Recovering/Resolving]
  - Deep vein thrombosis [Recovered/Resolved]
  - Mucosal inflammation [Not Recovered/Not Resolved]
  - Diarrhoea [Not Recovered/Not Resolved]
  - Ejection fraction decreased [Recovered/Resolved]

NARRATIVE: CASE EVENT DATE: 201606
